FAERS Safety Report 5026093-9 (Version None)
Quarter: 2006Q2

REPORT INFORMATION
  Report Type: 
  Country: None (occurrence: None)
  Receive Date: 20060612
  Receipt Date: 20060612
  Transmission Date: 20061013
  Serious: Yes (Hospitalization)
  Sender: FDA-Public Use
  Company Number: None

PATIENT
  Sex: Male
  Weight: 68 kg

DRUGS (1)
  1. WARFARIN SODIUM [Suspect]
     Indication: PULMONARY EMBOLISM
     Dosage: 5 MG 5 DAYS/WEEK PO , 2.5 MG 2 DAYS/WEEK PO
     Route: 048
     Dates: start: 20060301, end: 20060607

REACTIONS (10)
  - ABDOMINAL DISCOMFORT [None]
  - COMMUNICATION DISORDER [None]
  - HAEMATOCHEZIA [None]
  - INTERNATIONAL NORMALISED RATIO ABNORMAL [None]
  - LARGE INTESTINAL ULCER [None]
  - NAUSEA [None]
  - ORAL INTAKE REDUCED [None]
  - RECTAL HAEMORRHAGE [None]
  - TREATMENT NONCOMPLIANCE [None]
  - VOMITING [None]
